FAERS Safety Report 7581422-7 (Version None)
Quarter: 2011Q2

REPORT INFORMATION
  Report Type: 
  Country: None (occurrence: None)
  Receive Date: 20110629
  Receipt Date: 20110614
  Transmission Date: 20111010
  Serious: No
  Sender: FDA-Public Use
  Company Number: PHHY2011US52407

PATIENT
  Age: 21 Year
  Sex: Male

DRUGS (4)
  1. PREGABALIN [Suspect]
     Indication: EPILEPSY
     Dosage: UNK
  2. PHENYTOIN [Suspect]
     Indication: EPILEPSY
  3. ZONISAMIDE [Suspect]
     Indication: EPILEPSY
     Dosage: UNK
  4. CARBAMAZEPINE [Suspect]
     Indication: EPILEPSY
     Dosage: UNK

REACTIONS (1)
  - DRUG INEFFECTIVE [None]
